FAERS Safety Report 7605359-X (Version None)
Quarter: 2011Q3

REPORT INFORMATION
  Report Type: 
  Country: None (occurrence: None)
  Receive Date: 20110713
  Receipt Date: 20110705
  Transmission Date: 20111222
  Serious: Yes (Disabling)
  Sender: FDA-Public Use
  Company Number: FR-ASTELLAS-2011EU004541

PATIENT
  Sex: Male

DRUGS (3)
  1. MYCOPHENOLATE MEFETIL [Concomitant]
     Dosage: UNK
     Route: 065
  2. TACROLIMUS [Suspect]
     Indication: RENAL TRANSPLANT
     Dosage: 3 MG, UNKNOWN/D
     Route: 065
     Dates: start: 20101203
  3. PROGRAF [Suspect]
     Indication: RENAL TRANSPLANT
     Dosage: 2.5 MG, UNKNOWN/D
     Route: 065

REACTIONS (1)
  - ADVERSE DRUG REACTION [None]
